FAERS Safety Report 4516560-6 (Version None)
Quarter: 2004Q4

REPORT INFORMATION
  Report Type: 
  Country: None (occurrence: None)
  Receive Date: 20041012
  Receipt Date: 20040628
  Transmission Date: 20050328
  Serious: No
  Sender: FDA-Public Use
  Company Number: A03200402110

PATIENT
  Age: 76 Year
  Sex: Male

DRUGS (1)
  1. UROXATRAL [Suspect]
     Indication: URINARY RETENTION
     Dosage: 10 MG OD - ORAL
     Route: 048
     Dates: start: 20040625, end: 20040628

REACTIONS (2)
  - BLOOD GLUCOSE INCREASED [None]
  - HEART RATE INCREASED [None]
